FAERS Safety Report 7422185-5 (Version None)
Quarter: 2011Q2

REPORT INFORMATION
  Report Type: 
  Country: None (occurrence: None)
  Receive Date: 20110418
  Receipt Date: 20110224
  Transmission Date: 20111010
  Serious: Yes (Other)
  Sender: FDA-Public Use
  Company Number: US-BAYER-201041453NA

PATIENT
  Age: 40 Year
  Sex: Female
  Weight: 80.726 kg

DRUGS (11)
  1. METOPROLOL [Concomitant]
     Dosage: 25 MG, UNK
     Route: 048
     Dates: start: 20070717
  2. YASMIN [Suspect]
     Indication: ACNE
     Dosage: UNK UNK, QD
     Dates: start: 20060706, end: 20071006
  3. DIAZEPAM [Concomitant]
     Dosage: 10 MG, UNK
     Route: 048
     Dates: start: 20061219
  4. COUMADIN [Concomitant]
     Dosage: 2.5 MG, UNK
     Route: 048
     Dates: start: 20071205
  5. YAZ [Suspect]
     Indication: ACNE
     Dosage: UNK UNK, QD
     Route: 048
     Dates: start: 20060706, end: 20071006
  6. YAZ [Suspect]
     Indication: CONTRACEPTION
  7. YASMIN [Suspect]
     Indication: CONTRACEPTION
  8. AMOXICILLIN [Concomitant]
     Dosage: 500 MG, UNK
     Route: 048
     Dates: start: 20060715
  9. LEVAQUIN [Concomitant]
     Dosage: 500 MG, UNK
     Route: 048
     Dates: start: 20060731
  10. GLUCOPHAGE [Concomitant]
     Dosage: 850 MG, UNK
     Route: 048
  11. METFORMIN [Concomitant]
     Dosage: 850 MG, UNK
     Route: 048
     Dates: start: 20061219

REACTIONS (4)
  - CEREBROVASCULAR ACCIDENT [None]
  - INJURY [None]
  - DEEP VEIN THROMBOSIS [None]
  - PAIN [None]
